FAERS Safety Report 11220406 (Version 1)
Quarter: 2015Q2

REPORT INFORMATION
  Report Type: Spontaneous
  Country: US (occurrence: None)
  Receive Date: 20150625
  Receipt Date: 20150625
  Transmission Date: 20150821
  Serious: Yes (Hospitalization)
  Sender: FDA-Public Use
  Company Number: None

PATIENT
  Age: 75 Year
  Sex: Male
  Weight: 99 kg

DRUGS (2)
  1. ABIRATERONE ACETATE [Suspect]
     Active Substance: ABIRATERONE ACETATE
     Dates: end: 20150520
  2. PREDNISONE. [Concomitant]
     Active Substance: PREDNISONE
     Dates: end: 20150520

REACTIONS (3)
  - Hypokalaemia [None]
  - Colitis [None]
  - Supraventricular tachycardia [None]

NARRATIVE: CASE EVENT DATE: 20150520
